FAERS Safety Report 4909167-X (Version None)
Quarter: 2006Q1

REPORT INFORMATION
  Report Type: 
  Country: None (occurrence: None)
  Receive Date: 20060213
  Receipt Date: 20060201
  Transmission Date: 20060701
  Serious: Yes (Other)
  Sender: FDA-Public Use
  Company Number: FR-BRISTOL-MYERS SQUIBB COMPANY-13271408

PATIENT
  Age: 77 Year
  Sex: Male

DRUGS (3)
  1. ELISOR TABS [Suspect]
     Indication: HYPERCHOLESTEROLAEMIA
     Route: 048
     Dates: end: 20051026
  2. SINEMET [Concomitant]
     Indication: PARKINSON'S DISEASE
  3. PREVISCAN [Concomitant]
     Indication: MITRAL VALVE REPLACEMENT

REACTIONS (3)
  - ALANINE AMINOTRANSFERASE INCREASED [None]
  - ASPARTATE AMINOTRANSFERASE INCREASED [None]
  - WEIGHT DECREASED [None]
